FAERS Safety Report 24396315 (Version 1)
Quarter: 2024Q4

REPORT INFORMATION
  Report Type: Spontaneous
  Country: KR (occurrence: KR)
  Receive Date: 20241004
  Receipt Date: 20241004
  Transmission Date: 20250115
  Serious: Yes (Hospitalization, Other)
  Sender: PFIZER
  Company Number: KR-BRISTOL-MYERS SQUIBB COMPANY-2024-132901

PATIENT
  Age: 78 Year
  Sex: Male
  Weight: 51.6 kg

DRUGS (13)
  1. ELIQUIS [Suspect]
     Active Substance: APIXABAN
     Dosage: 10 MG
     Dates: start: 20211005, end: 20211014
  2. PACLITAXEL [Suspect]
     Active Substance: PACLITAXEL
     Indication: Non-small cell lung cancer stage IV
     Dosage: 212 MG, EVERY 3 WEEKS
     Dates: start: 20210719, end: 20210923
  3. BEVACIZUMAB [Suspect]
     Active Substance: BEVACIZUMAB
     Indication: Treatment failure
     Dosage: 858 MG, 1X/DAY
     Dates: start: 20210719
  4. METHYLPREDNISOLONE SODIUM SUCCINATE [Concomitant]
     Active Substance: METHYLPREDNISOLONE SODIUM SUCCINATE
     Dosage: 10 MG
     Dates: start: 20211014, end: 20211014
  5. CHLORPHENIRAMINE MALEATE [Concomitant]
     Active Substance: CHLORPHENIRAMINE MALEATE
     Dosage: UNK
  6. BISACODYL [Concomitant]
     Active Substance: BISACODYL
     Dosage: 10 MG
     Dates: start: 20210714, end: 20211014
  7. MEGESTROL ACETATE [Concomitant]
     Active Substance: MEGESTROL ACETATE
     Dosage: 5 MG
     Dates: start: 20210412, end: 20211014
  8. LANSOPRAZOLE [Concomitant]
     Active Substance: LANSOPRAZOLE
     Dosage: 15 MG
     Dates: start: 20210504, end: 20211014
  9. BROMELAINS [Concomitant]
     Active Substance: BROMELAINS
     Dosage: UNK
     Dates: start: 20210901, end: 20211014
  10. FLUBENDAZOLE [Concomitant]
     Active Substance: FLUBENDAZOLE
     Dosage: 40 MG
     Dates: start: 20210601, end: 20211014
  11. ESOMEPRAZOLE MAGNESIUM [Concomitant]
     Active Substance: ESOMEPRAZOLE MAGNESIUM
     Dosage: 40 MG
     Dates: start: 20211015, end: 20211018
  12. PANCREATIN [Concomitant]
     Active Substance: PANCRELIPASE
     Dosage: UNK
     Dates: start: 20210901, end: 20211014
  13. MAGNESIUM OXIDE [Concomitant]
     Active Substance: MAGNESIUM OXIDE
     Dosage: 1500 MG
     Dates: start: 20210712, end: 20211014

REACTIONS (1)
  - Gastrointestinal haemorrhage [Not Recovered/Not Resolved]

NARRATIVE: CASE EVENT DATE: 20211015
